FAERS Safety Report 9699574 (Version 2)
Quarter: 2013Q4

REPORT INFORMATION
  Report Type: Report from Study
  Country: US (occurrence: US)
  Receive Date: 20131120
  Receipt Date: 20131211
  Transmission Date: 20140711
  Serious: Yes (Other)
  Sender: FDA-Public Use
  Company Number: US-ASTRAZENECA-2013SE84407

PATIENT
  Age: 25926 Day
  Sex: Male

DRUGS (22)
  1. AZD6140 [Suspect]
     Indication: CORONARY ARTERY DISEASE
     Route: 048
     Dates: start: 20110516, end: 20120202
  2. AZD6140 [Suspect]
     Indication: CORONARY ARTERY DISEASE
     Route: 048
     Dates: start: 20120209, end: 20131106
  3. CRESTOR [Concomitant]
     Indication: BLOOD CHOLESTEROL ABNORMAL
     Route: 048
     Dates: start: 20111121
  4. ANTIVERT [Concomitant]
     Indication: VERTIGO
     Route: 048
     Dates: start: 20131106, end: 20131106
  5. ANTIVERT [Concomitant]
     Indication: VERTIGO
     Route: 048
     Dates: start: 20131106
  6. FENOFIBRATE [Concomitant]
     Indication: HYPERLIPIDAEMIA
     Route: 048
  7. CHONDROITIN [Concomitant]
     Indication: ARTHRITIS
     Route: 048
  8. OCUVITE [Concomitant]
     Indication: MACULAR DEGENERATION
     Route: 048
  9. METFORMIN [Concomitant]
     Indication: TYPE 2 DIABETES MELLITUS
     Route: 048
     Dates: start: 20130816
  10. TYLENOL [Concomitant]
     Indication: PAIN
     Route: 048
  11. ZINC [Concomitant]
     Indication: VITAMIN SUPPLEMENTATION
     Route: 048
     Dates: start: 20120901
  12. METOPROLOL [Concomitant]
     Indication: HYPERTENSION
     Route: 048
  13. METOPROLOL [Concomitant]
     Indication: ACUTE CORONARY SYNDROME
     Route: 048
  14. GLUCOSAMINE [Concomitant]
     Indication: ARTHRITIS
     Route: 048
  15. GLUCOSAMINE [Concomitant]
     Indication: ACUTE CORONARY SYNDROME
     Route: 048
  16. VITAMIN D3 [Concomitant]
     Indication: VITAMIN SUPPLEMENTATION
     Route: 048
  17. ZOFRAN [Concomitant]
     Indication: VERTIGO
     Route: 042
     Dates: start: 20131106, end: 20131106
  18. ZOFRAN [Concomitant]
     Indication: VERTIGO
     Route: 048
     Dates: start: 20131106
  19. NORMAL SALINE [Concomitant]
     Indication: VERTIGO
     Route: 042
     Dates: start: 20131106, end: 20131106
  20. NEXIUM [Concomitant]
     Indication: GASTROOESOPHAGEAL REFLUX DISEASE
     Route: 048
  21. MULTIVITAMIN [Concomitant]
     Indication: VITAMIN SUPPLEMENTATION
     Route: 048
     Dates: start: 20130301
  22. ASA [Concomitant]
     Route: 048

REACTIONS (1)
  - Pancytopenia [Not Recovered/Not Resolved]
